FAERS Safety Report 9332901 (Version 1)
Quarter: 2013Q2

REPORT INFORMATION
  Report Type: Spontaneous
  Country: CA (occurrence: None)
  Receive Date: 20130603
  Receipt Date: 20130603
  Transmission Date: 20140414
  Serious: Yes (Hospitalization, Other)
  Sender: FDA-Public Use
  Company Number: 2013P1006379

PATIENT
  Age: 68 Year
  Sex: Male
  Weight: 80 kg

DRUGS (9)
  1. AMLODIPINE [Suspect]
     Indication: SUICIDE ATTEMPT
  2. METFORMIN [Suspect]
     Indication: SUICIDE ATTEMPT
  3. ETHANOL [Suspect]
     Indication: SUICIDE ATTEMPT
  4. ACETYLSALICYLIC ACID [Concomitant]
  5. GLYBURIDE [Concomitant]
  6. TAMSULOSIN [Concomitant]
  7. VITAMIN B12 [Concomitant]
  8. CLONAZEPAM [Concomitant]
  9. IRBESARTAN [Concomitant]

REACTIONS (8)
  - Suicide attempt [None]
  - Blood glucose increased [None]
  - Blood creatinine increased [None]
  - Blood creatine phosphokinase increased [None]
  - Blood sodium decreased [None]
  - Shock [None]
  - Toxicity to various agents [None]
  - Intentional overdose [None]
